FAERS Safety Report 6695794-9 (Version None)
Quarter: 2010Q2

REPORT INFORMATION
  Report Type: 
  Country: None (occurrence: None)
  Receive Date: 20100421
  Receipt Date: 20100405
  Transmission Date: 20101027
  Serious: Yes (Hospitalization, Disabling)
  Sender: FDA-Public Use
  Company Number: OSCN-NO-0801L-0024

PATIENT
  Age: 47 Year
  Sex: Male

DRUGS (1)
  1. OMNISCAN [Suspect]
     Indication: BLOOD BILIRUBIN INCREASED
     Dosage: 14 ML, SINGLE DOSE  ABOUT 7 MONTHS AFTER 1ST ADMIN - ALKALINE PHOSPHATASE INCREASED

REACTIONS (3)
  - MALIGNANT FIBROUS HISTIOCYTOMA [None]
  - METASTASES TO LUNG [None]
  - NEPHROGENIC SYSTEMIC FIBROSIS [None]
